FAERS Safety Report 7787485-8 (Version None)
Quarter: 2011Q3

REPORT INFORMATION
  Report Type: 
  Country: None (occurrence: None)
  Receive Date: 20110929
  Receipt Date: 20110923
  Transmission Date: 20111222
  Serious: Yes (Hospitalization)
  Sender: FDA-Public Use
  Company Number: PHHY2011FR55981

PATIENT
  Sex: Male

DRUGS (2)
  1. GENTAMICIN [Concomitant]
     Dates: start: 20110301, end: 20110301
  2. VANCOMYCIN HCL [Suspect]
     Indication: ENDOCARDITIS
     Route: 042
     Dates: start: 20110301, end: 20110301

REACTIONS (4)
  - PYREXIA [None]
  - TOXIC SKIN ERUPTION [None]
  - VIRAL INFECTION [None]
  - RASH [None]
